FAERS Safety Report 24293355 (Version 1)
Quarter: 2024Q3

REPORT INFORMATION
  Report Type: Spontaneous
  Country: US (occurrence: None)
  Receive Date: 20240906
  Receipt Date: 20240906
  Transmission Date: 20241016
  Serious: No
  Sender: DOMPE FARMACEUTICI
  Company Number: US-FARMAPROD-202308-202401-0056

PATIENT
  Age: 63 Year
  Sex: Female

DRUGS (8)
  1. OXERVATE [Suspect]
     Active Substance: CENEGERMIN-BKBJ
     Indication: Neurotrophic keratopathy
     Route: 047
     Dates: start: 20231130
  2. OXERVATE [Suspect]
     Active Substance: CENEGERMIN-BKBJ
  3. PROBIOTIC 5B CELL [Concomitant]
  4. HERBALS\TURMERIC [Concomitant]
     Active Substance: HERBALS\TURMERIC
  5. ZINC [Concomitant]
     Active Substance: ZINC
  6. MAGNESIUM [Concomitant]
     Active Substance: MAGNESIUM
  7. CALCIUM [Concomitant]
     Active Substance: CALCIUM
     Dosage: 500(1250)
  8. FISH OIL [Concomitant]
     Active Substance: FISH OIL

REACTIONS (6)
  - COVID-19 [Recovered/Resolved]
  - Dry eye [Unknown]
  - Eye pain [Unknown]
  - Eye pruritus [Unknown]
  - Inappropriate schedule of product administration [Unknown]
  - Product administration error [Unknown]

NARRATIVE: CASE EVENT DATE: 20231201
